FAERS Safety Report 6703558-2 (Version None)
Quarter: 2010Q2

REPORT INFORMATION
  Report Type: 
  Country: None (occurrence: None)
  Receive Date: 20100430
  Receipt Date: 20100419
  Transmission Date: 20101027
  Serious: Yes (Other)
  Sender: FDA-Public Use
  Company Number: US-PFIZER INC-2010030507

PATIENT
  Sex: Male
  Weight: 69 kg

DRUGS (6)
  1. GENOTROPIN [Suspect]
     Indication: GROWTH HORMONE DEFICIENCY
     Dosage: 1 MG, 1X/DAY
  2. LAMICTAL [Concomitant]
  3. KEPPRA [Concomitant]
  4. PREDNISONE TAB [Concomitant]
     Dosage: UNK
  5. LEVOXYL [Concomitant]
  6. ENALAPRIL [Concomitant]
     Dosage: UNK

REACTIONS (2)
  - OESOPHAGITIS [None]
  - RECTAL HAEMORRHAGE [None]
